FAERS Safety Report 7865142-7 (Version None)
Quarter: 2011Q4

REPORT INFORMATION
  Report Type: 
  Country: None (occurrence: None)
  Receive Date: 20111028
  Receipt Date: 20101021
  Transmission Date: 20120403
  Serious: No
  Sender: FDA-Public Use
  Company Number: US-GLAXOSMITHKLINE-A0888033A

PATIENT
  Age: 30 Year
  Sex: Male

DRUGS (2)
  1. ZYRTEC [Concomitant]
  2. ADVAIR DISKUS 100/50 [Suspect]
     Indication: ASTHMA
     Route: 055
     Dates: start: 19950101

REACTIONS (1)
  - CHEST DISCOMFORT [None]
